FAERS Safety Report 9461972 (Version 1)
Quarter: 2013Q3

REPORT INFORMATION
  Report Type: Spontaneous
  Country: FR (occurrence: FR)
  Receive Date: 20130816
  Receipt Date: 20130816
  Transmission Date: 20140515
  Serious: Yes (Hospitalization)
  Sender: FDA-Public Use
  Company Number: FR-PFIZER INC-2013236138

PATIENT
  Age: 92 Year
  Sex: Male

DRUGS (4)
  1. LYRICA [Suspect]
     Indication: POLYNEUROPATHY
     Dosage: 75 MG, 1X/DAY
     Route: 048
     Dates: start: 20130620, end: 20130701
  2. METFORMIN [Concomitant]
  3. COUMADINE [Concomitant]
  4. LERCAN [Concomitant]

REACTIONS (2)
  - Somnolence [Recovered/Resolved]
  - Fall [Recovered/Resolved]
